FAERS Safety Report 8529414-5 (Version None)
Quarter: 2012Q3

REPORT INFORMATION
  Report Type: 
  Country: None (occurrence: None)
  Receive Date: 20120723
  Receipt Date: 20120712
  Transmission Date: 20120928
  Serious: Yes (Other)
  Sender: FDA-Public Use
  Company Number: DE-009507513-1207DEU005467

PATIENT

DRUGS (10)
  1. MIRTAZAPINE [Suspect]
     Dosage: 15 MG, QD
     Route: 048
     Dates: start: 20120330, end: 20120402
  2. MIRTAZAPINE [Suspect]
     Dosage: 30 MG, QD
     Route: 048
     Dates: start: 20120403, end: 20120411
  3. MIRTAZAPINE [Suspect]
     Dosage: 15 MG, QD
     Route: 048
     Dates: start: 20120412, end: 20120416
  4. SEROQUEL [Concomitant]
     Dosage: 100 MG, QD
     Route: 048
     Dates: start: 20120322, end: 20120325
  5. SEROQUEL [Concomitant]
     Dosage: 225 MG, QD
     Route: 048
     Dates: start: 20120403, end: 20120413
  6. SEROQUEL [Concomitant]
     Dosage: 200 MG, QD
     Route: 048
     Dates: start: 20120329, end: 20120329
  7. SEROQUEL [Concomitant]
     Dosage: 150 MG, QD
     Route: 048
     Dates: start: 20120326, end: 20120328
  8. SEROQUEL [Concomitant]
     Dosage: 250 MG, QD
     Route: 048
     Dates: start: 20120330, end: 20120402
  9. SEROQUEL [Concomitant]
     Dosage: 300 MG, QD
     Route: 048
     Dates: start: 20120414
  10. PANTOPRAZOLE [Concomitant]
     Dosage: 20 MG, QD
     Route: 048
     Dates: start: 20120401

REACTIONS (1)
  - RESTLESS LEGS SYNDROME [None]
